FAERS Safety Report 23999887 (Version 2)
Quarter: 2024Q3

REPORT INFORMATION
  Report Type: Spontaneous
  Country: US (occurrence: US)
  Receive Date: 20240621
  Receipt Date: 20240701
  Transmission Date: 20241017
  Serious: Yes (Other)
  Sender: PFIZER
  Company Number: US-PFIZER INC-202400196000

PATIENT
  Age: 67 Year
  Sex: Male
  Weight: 107 kg

DRUGS (5)
  1. SPIRONOLACTONE [Suspect]
     Active Substance: SPIRONOLACTONE
     Dosage: TAKE 1 TABLET (25 MG) BY MOUTH 1 (ONE) TIME EACH DAY.
     Route: 048
     Dates: start: 20231114
  2. ENTRESTO [Suspect]
     Active Substance: SACUBITRIL\VALSARTAN
     Dosage: 24/26 MG TWICE DAILY
     Dates: start: 2023
  3. TOPROL XL [Suspect]
     Active Substance: METOPROLOL SUCCINATE
     Dosage: 25 MG, DAILY
     Dates: start: 2023
  4. JARDIANCE [Suspect]
     Active Substance: EMPAGLIFLOZIN
     Dosage: 10 MG, DAILY
     Dates: start: 2023
  5. LASIX [Suspect]
     Active Substance: FUROSEMIDE
     Dosage: 20 MG, AS NEEDED

REACTIONS (1)
  - Cardiac amyloidosis [Unknown]

NARRATIVE: CASE EVENT DATE: 20240101
